FAERS Safety Report 7641572-3 (Version None)
Quarter: 2011Q3

REPORT INFORMATION
  Report Type: 
  Country: None (occurrence: None)
  Receive Date: 20110728
  Receipt Date: 20110715
  Transmission Date: 20111222
  Serious: Yes (Hospitalization, Other)
  Sender: FDA-Public Use
  Company Number: US-ELI_LILLY_AND_COMPANY-US201107005955

PATIENT
  Sex: Female

DRUGS (8)
  1. EVISTA [Suspect]
     Indication: OSTEOPENIA
     Dosage: 60 MG, QD
     Dates: start: 19981102
  2. VERAPAMIL [Concomitant]
  3. CLONAZEPAM [Concomitant]
  4. ASPIRIN [Concomitant]
  5. ASCORBIC ACID [Concomitant]
  6. CENTRUM SILVER [Concomitant]
  7. CALCIUM + VITAMIN D [Concomitant]
  8. GLUCOSAMINE + CHONDROITIN [Concomitant]

REACTIONS (8)
  - ARTHROPATHY [None]
  - FALL [None]
  - BURNING SENSATION [None]
  - PATELLA FRACTURE [None]
  - RESTLESS LEGS SYNDROME [None]
  - DRUG DOSE OMISSION [None]
  - SLEEP DISORDER [None]
  - BODY HEIGHT DECREASED [None]
